FAERS Safety Report 13408952 (Version 2)
Quarter: 2023Q1

REPORT INFORMATION
  Report Type: Spontaneous
  Country: US (occurrence: US)
  Receive Date: 20170406
  Receipt Date: 20230227
  Transmission Date: 20230418
  Serious: No
  Sender: FDA-Public Use
  Company Number: US-JNJFOC-20170109646

PATIENT
  Age: 1 Year
  Sex: Male

DRUGS (5)
  1. RISPERDAL [Suspect]
     Active Substance: RISPERIDONE
     Indication: Attention deficit hyperactivity disorder
     Route: 048
     Dates: start: 19990526, end: 20140210
  2. RISPERDAL [Suspect]
     Active Substance: RISPERIDONE
     Indication: Oppositional defiant disorder
  3. RISPERDAL [Suspect]
     Active Substance: RISPERIDONE
     Indication: Affective disorder
  4. RISPERDAL M-TAB [Suspect]
     Active Substance: RISPERIDONE
     Indication: Product used for unknown indication
     Route: 048
  5. RISPERIDONE [Suspect]
     Active Substance: RISPERIDONE
     Indication: Product used for unknown indication
     Route: 065

REACTIONS (6)
  - Obesity [Unknown]
  - Condition aggravated [Unknown]
  - Gynaecomastia [Unknown]
  - Emotional disorder [Unknown]
  - Increased appetite [Unknown]
  - Off label use [Unknown]

NARRATIVE: CASE EVENT DATE: 19990526
